FAERS Safety Report 15268837 (Version 1)
Quarter: 2018Q3

REPORT INFORMATION
  Report Type: Spontaneous
  Country: US (occurrence: US)
  Receive Date: 20180813
  Receipt Date: 20180813
  Transmission Date: 20181010
  Serious: Yes (Hospitalization, Other)
  Sender: FDA-Public Use
  Company Number: US-BEH-2018093034

PATIENT
  Age: 66 Year
  Sex: Male
  Weight: 112.47 kg

DRUGS (21)
  1. EPINEPHRINE. [Concomitant]
     Active Substance: EPINEPHRINE
  2. BUDESONIDE. [Concomitant]
     Active Substance: BUDESONIDE
  3. COENZYME Q10 [Concomitant]
     Active Substance: UBIDECARENONE
  4. ZEMAIRA [Suspect]
     Active Substance: .ALPHA.1-PROTEINASE INHIBITOR HUMAN
     Dosage: UNK
     Route: 042
  5. NEXIUM [Concomitant]
     Active Substance: ESOMEPRAZOLE MAGNESIUM
  6. ISOSORBIDE MONONITRATE. [Concomitant]
     Active Substance: ISOSORBIDE MONONITRATE
  7. HEPARIN [Concomitant]
     Active Substance: HEPARIN SODIUM
  8. SPIRIVA [Concomitant]
     Active Substance: TIOTROPIUM BROMIDE MONOHYDRATE
  9. ZEMAIRA [Suspect]
     Active Substance: .ALPHA.1-PROTEINASE INHIBITOR HUMAN
     Indication: ALPHA-1 ANTI-TRYPSIN DEFICIENCY
     Dosage: 60 MG/KG, QW
     Route: 042
     Dates: start: 20170214
  10. MULTIVITAMINS [Concomitant]
     Active Substance: VITAMINS
  11. PERINDOPRIL [Concomitant]
     Active Substance: PERINDOPRIL
  12. ALBUTEROL                          /00139501/ [Concomitant]
     Active Substance: ALBUTEROL
  13. LASIX [Concomitant]
     Active Substance: FUROSEMIDE
  14. VENTOLIN [Concomitant]
     Active Substance: ALBUTEROL SULFATE
  15. BROVANA [Concomitant]
     Active Substance: ARFORMOTEROL TARTRATE
  16. ZEMAIRA [Suspect]
     Active Substance: .ALPHA.1-PROTEINASE INHIBITOR HUMAN
     Dosage: UNK
     Route: 042
  17. DIPHENHYDRAMINE. [Concomitant]
     Active Substance: DIPHENHYDRAMINE
  18. LMX                                /00033401/ [Concomitant]
  19. LIPITOR [Concomitant]
     Active Substance: ATORVASTATIN CALCIUM
  20. SODIUM CHLORIDE. [Concomitant]
     Active Substance: SODIUM CHLORIDE
  21. DILTIAZEM. [Concomitant]
     Active Substance: DILTIAZEM

REACTIONS (1)
  - Rib excision [Unknown]

NARRATIVE: CASE EVENT DATE: 20180730
